FAERS Safety Report 23992591 (Version 1)
Quarter: 2024Q2

REPORT INFORMATION
  Report Type: Spontaneous
  Country: FR (occurrence: FR)
  Receive Date: 20240620
  Receipt Date: 20240620
  Transmission Date: 20240716
  Serious: Yes (Hospitalization)
  Sender: FDA-Public Use
  Company Number: None

PATIENT
  Age: 70 Year
  Sex: Male
  Weight: 40.5 kg

DRUGS (1)
  1. XOLAIR [Suspect]
     Active Substance: OMALIZUMAB
     Indication: Pemphigoid
     Dosage: 300 MG, QMO
     Route: 058
     Dates: start: 20240108

REACTIONS (1)
  - Pleuropericarditis [Recovered/Resolved]

NARRATIVE: CASE EVENT DATE: 20240303
